FAERS Safety Report 4308742-3 (Version None)
Quarter: 2004Q1

REPORT INFORMATION
  Report Type: 
  Country: None (occurrence: None)
  Receive Date: 20040301
  Receipt Date: 20040301
  Transmission Date: 20041129
  Serious: Yes (Other)
  Sender: FDA-Public Use
  Company Number: None

PATIENT
  Sex: Female

DRUGS (2)
  1. LEVOFLOXACIN [Suspect]
     Indication: SINUSITIS
     Dosage: 500MG QD PO X 14 D
     Route: 048
  2. ALLEGRA-D [Concomitant]

REACTIONS (3)
  - ARTHRALGIA [None]
  - MYALGIA [None]
  - PLANTAR FASCIITIS [None]
